FAERS Safety Report 7481042-9 (Version None)
Quarter: 2011Q2

REPORT INFORMATION
  Report Type: 
  Country: None (occurrence: None)
  Receive Date: 20110516
  Receipt Date: 20071024
  Transmission Date: 20111010
  Serious: Yes (Death, Other)
  Sender: FDA-Public Use
  Company Number: US-BAYER-200714079BWH

PATIENT
  Age: 52 Year
  Sex: Male
  Weight: 83.9 kg

DRUGS (24)
  1. TRASYLOL [Suspect]
     Indication: CORONARY ARTERY BYPASS
     Dosage: 200 CC PRIMING
     Route: 042
     Dates: start: 20060116
  2. AMIKACIN [Concomitant]
     Dosage: UNK
     Dates: start: 20060807
  3. TRASYLOL [Suspect]
     Indication: HEART VALVE REPLACEMENT
  4. ZOCOR [Concomitant]
     Dosage: 80 MG, QD
     Route: 048
  5. TIGECYCLINE [Concomitant]
     Dosage: UNK
     Dates: start: 20060808
  6. AMIODARONE HCL [Concomitant]
  7. COUMADIN [Concomitant]
  8. AMINOTERAPIA [AMINO ACIDS NOS,LIPIDS NOS] [Concomitant]
  9. PLASMA [Concomitant]
     Dosage: 4 U, UNK
     Dates: start: 20060116
  10. TRASYLOL [Suspect]
     Indication: AORTIC VALVE REPLACEMENT
  11. ANCEF [Concomitant]
     Dosage: 1 G, UNK
     Route: 042
     Dates: start: 20060113
  12. HEPARIN [Concomitant]
     Dosage: UNK
     Route: 042
     Dates: start: 20060113
  13. MILRINONE [Concomitant]
     Dosage: UNK
     Route: 042
     Dates: start: 20060116
  14. LASIX [Concomitant]
  15. LIPITOR [Concomitant]
     Dosage: 40 MG, QD
     Route: 048
     Dates: start: 20050107
  16. LISINOPRIL [Concomitant]
     Dosage: 5 MG, QD
     Route: 048
     Dates: start: 19970910
  17. SODIUM BICARBONATE [Concomitant]
     Dosage: 50 MEQ,  75 MEQ
     Route: 042
     Dates: start: 20060116
  18. NITROGLYCERIN [Concomitant]
     Dosage: UNK
     Route: 042
     Dates: start: 20060116
  19. ACETYLSALICYLIC ACID SRT [Concomitant]
     Dosage: 325 MG, QD
     Route: 048
  20. PLATELETS [Concomitant]
     Dosage: 3 U, UNK
     Dates: start: 20060116
  21. HUMAN RED BLOOD CELLS [Concomitant]
     Dosage: 1 U, UNK
     Dates: start: 20060116
  22. LEVOPHED [Concomitant]
     Dosage: UNK
     Route: 042
     Dates: start: 20060116
  23. AMICAR [Concomitant]
  24. SODIUM NITROPRUSSIDE [Concomitant]

REACTIONS (27)
  - HYPOTENSION [None]
  - DEPRESSION [None]
  - PAIN [None]
  - MENTAL DISORDER [None]
  - GRAFT THROMBOSIS [None]
  - GANGRENE [None]
  - UNEVALUABLE EVENT [None]
  - LEG AMPUTATION [None]
  - HAND AMPUTATION [None]
  - INJURY [None]
  - SWELLING [None]
  - DEATH [None]
  - ACTIVITIES OF DAILY LIVING IMPAIRED [None]
  - FEEDING TUBE COMPLICATION [None]
  - ANHEDONIA [None]
  - RENAL FAILURE [None]
  - WOUND DECOMPOSITION [None]
  - WOUND INFECTION [None]
  - ANXIETY [None]
  - EMOTIONAL DISTRESS [None]
  - CARDIOVASCULAR DISORDER [None]
  - CARDIAC PACEMAKER REVISION [None]
  - CHOLECYSTECTOMY [None]
  - GASTROINTESTINAL FISTULA [None]
  - FEAR [None]
  - MYOCARDIAL INFARCTION [None]
  - EYE DISORDER [None]
